FAERS Safety Report 15920180 (Version 2)
Quarter: 2019Q1

REPORT INFORMATION
  Report Type: Spontaneous
  Country: US (occurrence: US)
  Receive Date: 20190205
  Receipt Date: 20190212
  Transmission Date: 20190417
  Serious: Yes (Other)
  Sender: FDA-Public Use
  Company Number: US-PFIZER INC-2019052373

PATIENT
  Age: 30 Year
  Sex: Female
  Weight: 43.84 kg

DRUGS (6)
  1. DEPO-MEDROL [Suspect]
     Active Substance: METHYLPREDNISOLONE ACETATE
     Dosage: UNK
     Route: 008
     Dates: start: 2018
  2. DEPO-MEDROL [Suspect]
     Active Substance: METHYLPREDNISOLONE ACETATE
     Dosage: UNK
     Dates: start: 2017
  3. SOMA [Concomitant]
     Active Substance: CARISOPRODOL
     Indication: INTERVERTEBRAL DISC PROTRUSION
     Dosage: 325 MG, UNK [ONE TO TWO TIMES A DAY]
     Route: 048
  4. DEPO-MEDROL [Suspect]
     Active Substance: METHYLPREDNISOLONE ACETATE
     Dosage: UNK
     Dates: start: 2016
  5. XTAMPZA ER [Concomitant]
     Active Substance: OXYCODONE
     Indication: INTERVERTEBRAL DISC PROTRUSION
     Dosage: 27 MG, 1X/DAY
     Route: 048
  6. ACETAMINOPHEN W/OXYCODONE [Concomitant]
     Active Substance: ACETAMINOPHEN\OXYCODONE HYDROCHLORIDE
     Indication: INTERVERTEBRAL DISC PROTRUSION
     Dosage: UNK UNK, 3X/DAY [OXYCODONE HYDROCHLORIDE 10 MG/PARACETAMOL 325 MG]
     Route: 048

REACTIONS (4)
  - Osteonecrosis [Not Recovered/Not Resolved]
  - Product use issue [Unknown]
  - Alopecia [Unknown]
  - Amenorrhoea [Unknown]

NARRATIVE: CASE EVENT DATE: 2016
